FAERS Safety Report 4832732-5 (Version None)
Quarter: 2005Q4

REPORT INFORMATION
  Report Type: 
  Country: None (occurrence: None)
  Receive Date: 20051117
  Receipt Date: 20051117
  Transmission Date: 20060501
  Serious: Yes (Hospitalization)
  Sender: FDA-Public Use
  Company Number: None

PATIENT
  Sex: Female

DRUGS (1)
  1. GOLYTELY [Suspect]
     Indication: DIAGNOSTIC PROCEDURE
     Dosage: 1 BOTTLE   ONCE   PO
     Route: 048
     Dates: start: 20051107, end: 20051107

REACTIONS (1)
  - HYPONATRAEMIA [None]
